FAERS Safety Report 5837320-X (Version None)
Quarter: 2008Q3

REPORT INFORMATION
  Report Type: 
  Country: None (occurrence: None)
  Receive Date: 20080731
  Receipt Date: 20080609
  Transmission Date: 20090109
  Serious: No
  Sender: FDA-Public Use
  Company Number: US200806002065

PATIENT
  Age: 57 Year
  Sex: Female

DRUGS (14)
  1. BYETTA [Suspect]
     Indication: TYPE 2 DIABETES MELLITUS
     Dosage: 5 UG, 2/D, SUBCUTANEOUS
     Route: 058
     Dates: start: 20080607
  2. EXENATIDE 5MCG PEN, DISPOSABLE DEVICE (EXENATIDE PEN (5MCG)) PEN,DISPO [Concomitant]
  3. GLUCOPHAGE /USA/ (METFORMIN HYDROCHLORIDE) [Concomitant]
  4. ACTOS /USA/ (PIOGLITAZONE HYDROCHLORIDE) [Concomitant]
  5. AMARYL [Concomitant]
  6. REGLAN /USA/ (METOCLOPRAMIDE HYDROCHLORIDE) [Concomitant]
  7. NEXIUM [Concomitant]
  8. MAXZIDE [Concomitant]
  9. LOTENSIN [Concomitant]
  10. LIPITOR [Concomitant]
  11. ATENOLOL [Concomitant]
  12. CYMBALTA [Concomitant]
  13. LOPID [Concomitant]
  14. SYNTHROID [Concomitant]

REACTIONS (3)
  - ERUCTATION [None]
  - FEELING ABNORMAL [None]
  - NAUSEA [None]
